FAERS Safety Report 21304181 (Version 1)
Quarter: 2022Q3

REPORT INFORMATION
  Report Type: Spontaneous
  Country: US (occurrence: US)
  Receive Date: 20220907
  Receipt Date: 20220907
  Transmission Date: 20221027
  Serious: Yes (Hospitalization, Other)
  Sender: FDA-Public Use
  Company Number: US-MYLANLABS-2022M1091599

PATIENT
  Sex: Female
  Weight: 53.52 kg

DRUGS (2)
  1. TETRABENAZINE [Suspect]
     Active Substance: TETRABENAZINE
     Indication: Product used for unknown indication
     Dosage: UNK, QD 1/2 TABLET ONCE DAILY FOR 1 WEEK
     Route: 065
  2. TETRABENAZINE [Suspect]
     Active Substance: TETRABENAZINE
     Dosage: UNK, BID 1/2 TABLET TWICE DAILY
     Route: 065
     Dates: end: 202208

REACTIONS (3)
  - Tic [Unknown]
  - Depression [Unknown]
  - Suicidal ideation [Unknown]
